FAERS Safety Report 24220569 (Version 1)
Quarter: 2024Q3

REPORT INFORMATION
  Report Type: Spontaneous
  Country: FR (occurrence: FR)
  Receive Date: 20240818
  Receipt Date: 20240818
  Transmission Date: 20241017
  Serious: Yes (Hospitalization)
  Sender: TEVA
  Company Number: None

PATIENT
  Age: 15 Year
  Sex: Female
  Weight: 57 kg

DRUGS (3)
  1. ALPRAZOLAM [Suspect]
     Active Substance: ALPRAZOLAM
     Indication: Intentional product misuse
     Dosage: 1 BOX OF ALPRAZOLAM 0.25 IN 1 DOSE
     Route: 048
     Dates: start: 20240707, end: 20240707
  2. ATARAX [Suspect]
     Active Substance: HYDROXYZINE HYDROCHLORIDE
     Indication: Intentional product misuse
     Dosage: 1 BOX IN 1 SOCKET, SCORED FILM-COATED TABLET:
     Route: 048
     Dates: start: 20240707, end: 20240707
  3. METHYLPREDNISOLONE [Suspect]
     Active Substance: METHYLPREDNISOLONE
     Indication: Intentional product misuse
     Dosage: 10 TABLETS OF 20MG IN 1 DOSE
     Route: 048
     Dates: start: 20240707, end: 20240707

REACTIONS (2)
  - Intentional overdose [Recovered/Resolved]
  - Toxicity to various agents [Recovered/Resolved]

NARRATIVE: CASE EVENT DATE: 20240707
